FAERS Safety Report 24771674 (Version 1)
Quarter: 2024Q4

REPORT INFORMATION
  Report Type: Spontaneous
  Country: US (occurrence: US)
  Receive Date: 20241224
  Receipt Date: 20241224
  Transmission Date: 20250115
  Serious: Yes (Death)
  Sender: PFIZER
  Company Number: US-PFIZER INC-PV202400056493

PATIENT
  Age: 80 Year
  Sex: Male
  Weight: 90.26 kg

DRUGS (1)
  1. TIKOSYN [Suspect]
     Active Substance: DOFETILIDE
     Indication: Atrial fibrillation
     Dosage: 1 DF, 2X/DAY
     Route: 048

REACTIONS (2)
  - Cardiac disorder [Fatal]
  - Wrong strength [Unknown]
